FAERS Safety Report 23652750 (Version 1)
Quarter: 2024Q1

REPORT INFORMATION
  Report Type: Spontaneous
  Country: FR (occurrence: FR)
  Receive Date: 20240320
  Receipt Date: 20240320
  Transmission Date: 20240409
  Serious: Yes (Other)
  Sender: FDA-Public Use
  Company Number: None

PATIENT
  Age: 73 Year
  Sex: Male
  Weight: 100 kg

DRUGS (1)
  1. ROPIVACAINE [Suspect]
     Active Substance: ROPIVACAINE
     Indication: Perioperative analgesia
     Dosage: 50 MILLIGRAM, QH
     Route: 008
     Dates: start: 20240305, end: 20240306

REACTIONS (4)
  - Toxicity to various agents [Recovered/Resolved]
  - Local anaesthetic systemic toxicity [Recovered/Resolved]
  - Paraesthesia oral [Recovered/Resolved]
  - Bradycardia [Recovered/Resolved]

NARRATIVE: CASE EVENT DATE: 20240306
